FAERS Safety Report 7787096-4 (Version None)
Quarter: 2011Q3

REPORT INFORMATION
  Report Type: 
  Country: None (occurrence: None)
  Receive Date: 20110929
  Receipt Date: 20110826
  Transmission Date: 20111222
  Serious: Yes (Hospitalization)
  Sender: FDA-Public Use
  Company Number: GR-AMGEN-GRCNI2010003196

PATIENT
  Age: 72 Year
  Sex: Male

DRUGS (1)
  1. ROMIPLOSTIM [Suspect]
     Indication: IDIOPATHIC THROMBOCYTOPENIC PURPURA
     Dosage: 3 MG/KG, QWK
     Route: 058
     Dates: start: 20100428

REACTIONS (2)
  - URINARY TRACT INFECTION [None]
  - PLATELET COUNT DECREASED [None]
